FAERS Safety Report 8219000-9 (Version None)
Quarter: 2012Q1

REPORT INFORMATION
  Report Type: 
  Country: None (occurrence: None)
  Receive Date: 20120319
  Receipt Date: 20120308
  Transmission Date: 20120608
  Serious: Yes (Other)
  Sender: FDA-Public Use
  Company Number: BR-MERCK-1203BRA00031

PATIENT
  Age: 55 Year
  Sex: Female
  Weight: 66 kg

DRUGS (9)
  1. DIPYRONE [Concomitant]
     Indication: PAIN
     Route: 065
     Dates: start: 20070101
  2. MESALAMINE [Concomitant]
     Indication: RHEUMATOID ARTHRITIS
     Route: 065
     Dates: start: 20080101
  3. COZAAR [Suspect]
     Indication: HYPERTENSION
     Route: 065
     Dates: start: 20080101
  4. METHOTREXATE [Concomitant]
     Indication: RHEUMATOID ARTHRITIS
     Route: 065
     Dates: start: 20080101
  5. ZOCOR [Suspect]
     Indication: BLOOD CHOLESTEROL INCREASED
     Route: 065
     Dates: start: 20080101
  6. VERAPAMIL [Concomitant]
     Indication: HYPERTENSION
     Route: 065
     Dates: start: 19820101
  7. CLONAZEPAM [Concomitant]
     Indication: DEPRESSION
     Route: 065
     Dates: start: 20060101
  8. HYDROCHLOROTHIAZIDE [Concomitant]
     Indication: HYPERTENSION
     Route: 065
     Dates: start: 20090101
  9. CAFFEINE AND DIPYRONE AND ORPHENADRINE CITRATE [Concomitant]
     Indication: PAIN
     Route: 065
     Dates: start: 20070101

REACTIONS (13)
  - PAIN [None]
  - HYPERSENSITIVITY [None]
  - THROAT TIGHTNESS [None]
  - TREMOR [None]
  - COUGH [None]
  - DRY MOUTH [None]
  - CEREBROVASCULAR ACCIDENT [None]
  - VISUAL IMPAIRMENT [None]
  - SOMNOLENCE [None]
  - DYSPNOEA [None]
  - COLITIS ULCERATIVE [None]
  - FEELING COLD [None]
  - HAEMATOCHEZIA [None]
